FAERS Safety Report 8596565-9 (Version None)
Quarter: 2012Q3

REPORT INFORMATION
  Report Type: 
  Country: None (occurrence: None)
  Receive Date: 20120815
  Receipt Date: 20120809
  Transmission Date: 20120928
  Serious: Yes (Other)
  Sender: FDA-Public Use
  Company Number: CH-JNJFOC-20120708632

PATIENT
  Sex: Female

DRUGS (6)
  1. COZAAR [Concomitant]
  2. PROPAFENONE HYDROCHLORIDE [Concomitant]
  3. XARELTO [Suspect]
     Indication: CEREBROVASCULAR ACCIDENT PROPHYLAXIS
     Route: 048
     Dates: start: 20120617
  4. XARELTO [Suspect]
     Indication: ATRIAL FIBRILLATION
     Route: 048
     Dates: start: 20120617
  5. MARCUMAR [Concomitant]
  6. NEXIUM [Concomitant]
     Indication: ATRIAL FIBRILLATION

REACTIONS (1)
  - VENTRICULAR EXTRASYSTOLES [None]
